FAERS Safety Report 7733181-2 (Version None)
Quarter: 2011Q3

REPORT INFORMATION
  Report Type: 
  Country: None (occurrence: None)
  Receive Date: 20110902
  Receipt Date: 20110902
  Transmission Date: 20111222
  Serious: Yes (Death)
  Sender: FDA-Public Use
  Company Number: None

PATIENT
  Age: 75 Year
  Sex: Male
  Weight: 86.1834 kg

DRUGS (1)
  1. AVELOX [Suspect]
     Indication: PNEUMONIA
     Dosage: 400 MG. 1 DAY MOUTH
     Route: 048
     Dates: start: 20100805, end: 20100810

REACTIONS (4)
  - SEPSIS [None]
  - CLOSTRIDIUM DIFFICILE COLITIS [None]
  - METABOLIC ACIDOSIS [None]
  - ACUTE RESPIRATORY FAILURE [None]
